FAERS Safety Report 6645400-4 (Version None)
Quarter: 2010Q1

REPORT INFORMATION
  Report Type: 
  Country: None (occurrence: None)
  Receive Date: 20100322
  Receipt Date: 20100310
  Transmission Date: 20100710
  Serious: Yes (Hospitalization)
  Sender: FDA-Public Use
  Company Number: FR-ABBOTT-10P-056-0631747-00

PATIENT
  Age: 75 Year
  Sex: Female

DRUGS (13)
  1. DEPAKOTE [Suspect]
     Indication: PSYCHOTIC DISORDER
     Dosage: GASTRO-RESISTANT TABLET
     Route: 048
     Dates: end: 20100115
  2. CORDARONE [Suspect]
     Indication: ATRIAL FIBRILLATION
     Route: 048
     Dates: start: 20100101, end: 20100126
  3. OMEPRAZOLE [Suspect]
     Indication: GASTRODUODENAL ULCER
     Route: 048
     Dates: end: 20100128
  4. AMOXICILLIN AND CLAVULANATE POTASSIUM [Suspect]
     Indication: INFECTION
     Route: 042
     Dates: start: 20091230, end: 20100124
  5. RIVOTRIL [Concomitant]
     Indication: DRUG USE FOR UNKNOWN INDICATION
  6. LEVOTHYROX [Concomitant]
     Indication: DRUG USE FOR UNKNOWN INDICATION
  7. NASALIDE [Concomitant]
     Indication: DRUG USE FOR UNKNOWN INDICATION
  8. DOLIPRANE [Concomitant]
     Indication: DRUG USE FOR UNKNOWN INDICATION
  9. PREVISCAN [Concomitant]
     Indication: DRUG USE FOR UNKNOWN INDICATION
  10. LOVENOX [Concomitant]
     Indication: DRUG USE FOR UNKNOWN INDICATION
  11. CALCIPARINE [Concomitant]
     Indication: DRUG USE FOR UNKNOWN INDICATION
  12. FACTOR II (PROTHROMBIN)/FACTOR IX COMPLEX HUMAN (FACTOR II(PROTHROMBIN [Concomitant]
     Indication: DRUG USE FOR UNKNOWN INDICATION
     Dates: start: 20100101, end: 20100102
  13. RED BLOOD CELLS [Concomitant]
     Indication: DRUG USE FOR UNKNOWN INDICATION
     Dates: start: 20100101, end: 20100101

REACTIONS (2)
  - PANCYTOPENIA [None]
  - RENAL FAILURE [None]
